FAERS Safety Report 4512461-8 (Version None)
Quarter: 2004Q4

REPORT INFORMATION
  Report Type: 
  Country: None (occurrence: None)
  Receive Date: 20041124
  Receipt Date: 20041111
  Transmission Date: 20050328
  Serious: No
  Sender: FDA-Public Use
  Company Number: A0533858A

PATIENT
  Age: 58 Year
  Sex: Male
  Weight: 99.7913 kg

DRUGS (1)
  1. NICODERM CQ [Suspect]
     Indication: TOBACCO USER
     Dosage: TRANSDERMAL
     Route: 062
     Dates: start: 19990101, end: 19990101

REACTIONS (4)
  - APPLICATION SITE REACTION [None]
  - HYPERTENSION [None]
  - MEDICATION ERROR [None]
  - SKIN CANCER [None]
